FAERS Safety Report 18172232 (Version 2)
Quarter: 2020Q3

REPORT INFORMATION
  Report Type: Spontaneous
  Country: US (occurrence: US)
  Receive Date: 20200819
  Receipt Date: 20200928
  Transmission Date: 20201103
  Serious: No
  Sender: FDA-Public Use
  Company Number: US-GILEAD-2020-0490163

PATIENT
  Sex: Male
  Weight: 89.34 kg

DRUGS (19)
  1. ISENTRESS [Concomitant]
     Active Substance: RALTEGRAVIR POTASSIUM
     Indication: HIV INFECTION
     Dosage: UNK
     Route: 065
  2. PREZISTA [Concomitant]
     Active Substance: DARUNAVIR ETHANOLATE
     Indication: HIV INFECTION
     Dosage: UNK
     Route: 065
  3. SUSTIVA [Concomitant]
     Active Substance: EFAVIRENZ
     Indication: HIV INFECTION
     Route: 065
  4. VIDEX [Concomitant]
     Active Substance: DIDANOSINE
     Indication: HIV INFECTION
     Route: 065
  5. VIREAD [Suspect]
     Active Substance: TENOFOVIR DISOPROXIL FUMARATE
     Indication: HIV INFECTION
     Dosage: UNK
     Route: 048
     Dates: start: 2001
  6. INVIRASE [Concomitant]
     Active Substance: SAQUINAVIR MESYLATE
     Indication: HIV INFECTION
     Route: 065
  7. EPIVIR [Concomitant]
     Active Substance: LAMIVUDINE
     Indication: HIV INFECTION
     Route: 065
  8. NORVIR [Concomitant]
     Active Substance: RITONAVIR
     Indication: HIV INFECTION
     Dosage: UNK
     Route: 065
  9. RETROVIR [Concomitant]
     Active Substance: ZIDOVUDINE
     Indication: HIV INFECTION
     Route: 065
  10. VIDEX EC [Concomitant]
     Active Substance: DIDANOSINE
     Indication: HIV INFECTION
     Route: 065
  11. KALETRA [Concomitant]
     Active Substance: LOPINAVIR\RITONAVIR
     Indication: HIV INFECTION
     Route: 065
  12. VIRACEPT [Concomitant]
     Active Substance: NELFINAVIR MESYLATE
     Indication: HIV INFECTION
     Route: 065
  13. ZERIT [Concomitant]
     Active Substance: STAVUDINE
     Indication: HIV INFECTION
     Route: 065
  14. CRESTOR [Concomitant]
     Active Substance: ROSUVASTATIN CALCIUM
     Indication: BLOOD CHOLESTEROL
     Route: 065
  15. LISINOPRIL. [Concomitant]
     Active Substance: LISINOPRIL
     Indication: HYPERTENSION
     Route: 065
  16. CRIXIVAN [Concomitant]
     Active Substance: INDINAVIR SULFATE
     Indication: HIV INFECTION
     Dosage: UNK
     Route: 065
     Dates: start: 199401, end: 1996
  17. FUZEON [Concomitant]
     Active Substance: ENFUVIRTIDE
     Indication: HIV INFECTION
     Route: 065
  18. METOPROLOL. [Concomitant]
     Active Substance: METOPROLOL
     Indication: HYPERTENSION
     Route: 065
  19. TRIZIVIR [Concomitant]
     Active Substance: ABACAVIR SULFATE\LAMIVUDINE\ZIDOVUDINE
     Indication: HIV INFECTION
     Route: 065

REACTIONS (5)
  - Blood creatinine increased [Not Recovered/Not Resolved]
  - Pain [Not Recovered/Not Resolved]
  - Emotional distress [Not Recovered/Not Resolved]
  - Anxiety [Not Recovered/Not Resolved]
  - Anhedonia [Not Recovered/Not Resolved]
